APPROVED DRUG PRODUCT: TRIPROLIDINE AND PSEUDOEPHEDRINE HYDROCHLORIDES
Active Ingredient: PSEUDOEPHEDRINE HYDROCHLORIDE; TRIPROLIDINE HYDROCHLORIDE
Strength: 120MG;5MG
Dosage Form/Route: CAPSULE, EXTENDED RELEASE;ORAL
Application: A071798 | Product #001
Applicant: KV PHARMACEUTICAL CO
Approved: Mar 16, 1989 | RLD: No | RS: No | Type: DISCN